FAERS Safety Report 6655037-9 (Version None)
Quarter: 2010Q1

REPORT INFORMATION
  Report Type: 
  Country: None (occurrence: None)
  Receive Date: 20100329
  Receipt Date: 20100313
  Transmission Date: 20100710
  Serious: Yes (Other)
  Sender: FDA-Public Use
  Company Number: US-JNJFOC-20030805429

PATIENT
  Sex: Male
  Weight: 79.38 kg

DRUGS (15)
  1. LEVAQUIN [Suspect]
     Indication: URINARY TRACT INFECTION
     Dates: start: 20030624, end: 20030726
  2. LEVAQUIN [Suspect]
     Dates: start: 20030624, end: 20030726
  3. SULFAMETHAZOLE [Concomitant]
  4. SIMVASTATIN [Concomitant]
  5. TERAZOSIN HCL [Concomitant]
  6. RABEPRAZOLE SODIUM [Concomitant]
  7. TRAVASOL 10% [Concomitant]
  8. FOSINOPRIL SODIUM [Concomitant]
  9. ASPIRIN [Concomitant]
  10. LOTENSIN [Concomitant]
  11. PROTONIX [Concomitant]
  12. EFFUDEX [Concomitant]
  13. LIPITOR [Concomitant]
  14. CARDIZEM [Concomitant]
  15. HYDROCHLOROTHIAZIDE [Concomitant]

REACTIONS (3)
  - EAR PAIN [None]
  - SUDDEN HEARING LOSS [None]
  - TINNITUS [None]
